FAERS Safety Report 9628929 (Version 2)
Quarter: 2013Q4

REPORT INFORMATION
  Report Type: Spontaneous
  Country: CA (occurrence: CA)
  Receive Date: 20131017
  Receipt Date: 20131017
  Transmission Date: 20140711
  Serious: Yes (Death, Life-Threatening, Hospitalization)
  Sender: FDA-Public Use
  Company Number: CA-ABBVIE-13P-028-1039999-00

PATIENT
  Age: 68 Year
  Sex: Female

DRUGS (11)
  1. HUMIRA [Suspect]
     Indication: ANKYLOSING SPONDYLITIS
     Route: 058
     Dates: start: 2011, end: 2011
  2. HEPARIN [Suspect]
  3. METHOTREXATE [Concomitant]
     Indication: SPONDYLITIS
     Route: 058
  4. METHOTREXATE [Concomitant]
     Route: 058
     Dates: start: 2011, end: 2011
  5. ZOLEDRONIC ACID [Concomitant]
     Indication: PRODUCT USED FOR UNKNOWN INDICATION
  6. VITAMIN D [Concomitant]
     Indication: PRODUCT USED FOR UNKNOWN INDICATION
  7. CALCIUM [Concomitant]
     Indication: PRODUCT USED FOR UNKNOWN INDICATION
  8. CELECOXIB [Concomitant]
     Indication: SPONDYLITIS
     Route: 048
  9. CELECOXIB [Concomitant]
     Indication: OSTEOARTHRITIS
  10. CELECOXIB [Concomitant]
     Indication: SPONDYLITIS
  11. CELECOXIB [Concomitant]
     Indication: TENDONITIS

REACTIONS (5)
  - Antiphospholipid syndrome [Fatal]
  - Cardiolipin antibody positive [Fatal]
  - Peripheral ischaemia [Fatal]
  - Peripheral vascular disorder [Fatal]
  - Gastrointestinal haemorrhage [Fatal]
